FAERS Safety Report 8140787-8 (Version None)
Quarter: 2012Q1

REPORT INFORMATION
  Report Type: 
  Country: None (occurrence: None)
  Receive Date: 20120216
  Receipt Date: 20120213
  Transmission Date: 20120608
  Serious: Yes (Hospitalization)
  Sender: FDA-Public Use
  Company Number: DK-PFIZER INC-2011258530

PATIENT
  Age: 62 Year
  Sex: Male
  Weight: 109 kg

DRUGS (15)
  1. NEUPOGEN [Suspect]
     Dosage: 6 MG, UNK
     Route: 058
     Dates: start: 20110904
  2. PREDNISONE [Suspect]
     Dosage: 100 MG, UNK
     Route: 042
     Dates: start: 20110901
  3. VINCRISTINE SULFATE [Suspect]
     Indication: DIFFUSE LARGE B-CELL LYMPHOMA
     Dosage: 2 MG, UNK
     Route: 042
     Dates: start: 20110811, end: 20110901
  4. CYCLOPHOSPHAMIDE [Suspect]
     Indication: DIFFUSE LARGE B-CELL LYMPHOMA
     Dosage: 1800 MG, UNK
     Route: 042
     Dates: start: 20110811, end: 20110901
  5. RITUXIMAB [Suspect]
     Dosage: 750 MG, UNK
     Route: 042
     Dates: start: 20110901
  6. SULFAMETHOXAZOLE [Concomitant]
     Indication: PROPHYLAXIS
     Dosage: UNK
     Route: 048
     Dates: start: 20110812
  7. RITUXIMAB [Suspect]
     Indication: DIFFUSE LARGE B-CELL LYMPHOMA
     Dosage: 750 MG, UNK
     Route: 042
     Dates: start: 20110811
  8. PREDNISONE [Suspect]
     Indication: DIFFUSE LARGE B-CELL LYMPHOMA
     Dosage: 100 MG, UNK
     Route: 048
     Dates: start: 20110811, end: 20110901
  9. CYCLOPHOSPHAMIDE [Suspect]
     Dosage: 1800 MG, UNK
     Route: 042
     Dates: start: 20110901
  10. CIPROFLOXACIN [Concomitant]
     Indication: PROPHYLAXIS
     Dosage: 1000 MG, UNK
     Route: 048
     Dates: start: 20110818
  11. DOXORUBICIN HCL [Suspect]
     Indication: DIFFUSE LARGE B-CELL LYMPHOMA
     Dosage: 125 MG, UNK
     Route: 042
     Dates: start: 20110811, end: 20110901
  12. AMOXICILLIN AND CLAVULANATE POTASSIUM [Concomitant]
     Indication: PRODUCT USED FOR UNKNOWN INDICATION
     Dosage: 500 MG, UNK
     Route: 048
     Dates: start: 20110818
  13. DOXORUBICIN HCL [Suspect]
     Dosage: 120 MG, UNK
     Route: 042
     Dates: start: 20110901
  14. NEUPOGEN [Suspect]
     Indication: DIFFUSE LARGE B-CELL LYMPHOMA
     Dosage: 6 MG, UNK
     Route: 058
     Dates: start: 20110815, end: 20110904
  15. VINCRISTINE SULFATE [Suspect]
     Dosage: 2 MG, UNK
     Route: 042
     Dates: start: 20110901

REACTIONS (2)
  - PNEUMONIA [None]
  - ERYSIPELAS [None]
